FAERS Safety Report 9350219 (Version 1)
Quarter: 2013Q2

REPORT INFORMATION
  Report Type: Spontaneous
  Country: SK (occurrence: SK)
  Receive Date: 20130617
  Receipt Date: 20130617
  Transmission Date: 20140414
  Serious: Yes (Life-Threatening, Hospitalization)
  Sender: FDA-Public Use
  Company Number: SK-MERCK-1306SVK005074

PATIENT
  Age: 57 Year
  Sex: Female
  Weight: 59 kg

DRUGS (6)
  1. VICTRELIS [Suspect]
     Indication: HEPATITIS C
     Dosage: 2400 MILLIGRAM PER
     Route: 048
     Dates: start: 20130209, end: 20130322
  2. PEGINTRON [Suspect]
     Indication: HEPATITIS C
     Dosage: 100 MICROGRAM,PER
     Route: 058
     Dates: start: 20130111, end: 20130322
  3. REBETOL [Suspect]
     Indication: HEPATITIS C
     Dosage: 800 MG, PER
     Route: 048
     Dates: start: 20130111, end: 20130322
  4. ASCORUTIN [Concomitant]
     Dosage: PER
     Route: 048
  5. LAGOSA [Concomitant]
     Dosage: PER
     Route: 048
  6. PARALEN [Concomitant]
     Dosage: PER

REACTIONS (1)
  - Febrile neutropenia [Recovered/Resolved]
